FAERS Safety Report 4398152-5 (Version None)
Quarter: 2004Q3

REPORT INFORMATION
  Report Type: 
  Country: None (occurrence: None)
  Receive Date: 20040714
  Receipt Date: 20040714
  Transmission Date: 20050211
  Serious: Yes (Hospitalization)
  Sender: FDA-Public Use
  Company Number: None

PATIENT
  Age: 71 Year
  Sex: Male
  Weight: 76 kg

DRUGS (15)
  1. HEPARIN [Suspect]
     Indication: ANTICOAGULANT THERAPY
     Dates: start: 20040403, end: 20040407
  2. HEPARIN [Suspect]
     Indication: ANTICOAGULANT THERAPY
     Dates: start: 20040411, end: 20040414
  3. LOVENOX [Suspect]
     Indication: ANTICOAGULANT THERAPY
     Dates: start: 20040414, end: 20040415
  4. PLAVIX [Concomitant]
  5. METOPROLOL [Concomitant]
  6. LISINOPRIL [Concomitant]
  7. LASIX [Concomitant]
  8. NEPRHOVITE [Concomitant]
  9. ASPIRIN [Concomitant]
  10. NIFEDIPINE [Concomitant]
  11. SIMVASTATIN [Concomitant]
  12. PREDNISONE [Concomitant]
  13. PERCOCET [Concomitant]
  14. ATIVAN [Concomitant]
  15. TUMS [Concomitant]

REACTIONS (1)
  - PLATELET COUNT DECREASED [None]
